FAERS Safety Report 15805595 (Version 1)
Quarter: 2019Q1

REPORT INFORMATION
  Report Type: Spontaneous
  Country: US (occurrence: US)
  Receive Date: 20190110
  Receipt Date: 20190110
  Transmission Date: 20190417
  Serious: No
  Sender: FDA-Public Use
  Company Number: US-AMGEN-USASP2019003385

PATIENT
  Age: 15 Year
  Sex: Male

DRUGS (1)
  1. ENBREL [Suspect]
     Active Substance: ETANERCEPT
     Indication: BONE LESION
     Dosage: 50 MG, QWK
     Route: 065
     Dates: start: 20180827

REACTIONS (4)
  - Injection site erythema [Unknown]
  - Off label use [Unknown]
  - Injection site swelling [Unknown]
  - Wrong technique in product usage process [Unknown]
